FAERS Safety Report 14972853 (Version 1)
Quarter: 2018Q2

REPORT INFORMATION
  Report Type: Spontaneous
  Country: US (occurrence: US)
  Receive Date: 20180605
  Receipt Date: 20180605
  Transmission Date: 20180711
  Serious: Yes (Other)
  Sender: FDA-Public Use
  Company Number: US-ROCHE-2130871

PATIENT
  Sex: Male
  Weight: 74.46 kg

DRUGS (2)
  1. ALECENSA [Suspect]
     Active Substance: ALECTINIB HYDROCHLORIDE
     Dosage: DOSE REDUCED, ONGOING
     Route: 065
  2. ALECENSA [Suspect]
     Active Substance: ALECTINIB HYDROCHLORIDE
     Indication: NON-SMALL CELL LUNG CANCER
     Route: 065
     Dates: start: 201610

REACTIONS (7)
  - Blood count abnormal [Unknown]
  - Muscle atrophy [Not Recovered/Not Resolved]
  - Hypotension [Unknown]
  - Constipation [Unknown]
  - Impaired gastric emptying [Not Recovered/Not Resolved]
  - Dysstasia [Not Recovered/Not Resolved]
  - Abnormal loss of weight [Not Recovered/Not Resolved]
